FAERS Safety Report 13287033 (Version 3)
Quarter: 2017Q2

REPORT INFORMATION
  Report Type: Spontaneous
  Country: US (occurrence: US)
  Receive Date: 20170302
  Receipt Date: 20170529
  Transmission Date: 20170830
  Serious: No
  Sender: FDA-Public Use
  Company Number: US-TEVA-743615ACC

PATIENT
  Age: 63 Year
  Sex: Female

DRUGS (18)
  1. NASONEX SPR [Concomitant]
     Dosage: 50 MCG/AC
     Dates: start: 20170227
  2. COPAXONE [Suspect]
     Active Substance: GLATIRAMER ACETATE
     Indication: MULTIPLE SCLEROSIS
     Route: 058
  3. SYMBICORT AER [Concomitant]
     Dosage: 160-4.5
     Dates: start: 20170227
  4. PROBIOTIC CAP COLON [Concomitant]
     Dates: start: 20170227
  5. COQ10 [Concomitant]
     Active Substance: UBIDECARENONE
     Dates: start: 20170227
  6. VITAMIN D3/VITAMIN C [Concomitant]
     Dates: start: 20170227
  7. BUPROPION. [Concomitant]
     Active Substance: BUPROPION
     Dates: start: 20170227
  8. ENOXAPARIN [Concomitant]
     Active Substance: ENOXAPARIN
     Dosage: 40/0.4 ML
     Dates: start: 20170227
  9. RESTORIL [Concomitant]
     Active Substance: TEMAZEPAM
  10. CAL-MAG-ZINC + D3 [Concomitant]
     Dates: start: 20170227
  11. HYDROXYZ [Concomitant]
     Active Substance: HYDROXYZINE HYDROCHLORIDE
     Dates: start: 20120505
  12. LYRICA [Concomitant]
     Active Substance: PREGABALIN
     Dates: start: 20170227
  13. POTASSIUM [Concomitant]
     Active Substance: POTASSIUM
     Dates: start: 20170227
  14. FENTANYL. [Concomitant]
     Active Substance: FENTANYL
     Dosage: 12 MCG/HR
     Dates: start: 20170227
  15. LEXAPRO [Concomitant]
     Active Substance: ESCITALOPRAM OXALATE
     Dates: start: 20120505
  16. LUNESTA [Concomitant]
     Active Substance: ESZOPICLONE
     Dates: start: 20170227
  17. VITAMIN B12 [Concomitant]
     Active Substance: CYANOCOBALAMIN
     Dates: start: 20170227
  18. FUROSEMIDE. [Concomitant]
     Active Substance: FUROSEMIDE
     Dates: start: 20170227

REACTIONS (3)
  - Neuropathy peripheral [Unknown]
  - Nervous system disorder [Not Recovered/Not Resolved]
  - Motor dysfunction [Not Recovered/Not Resolved]

NARRATIVE: CASE EVENT DATE: 201701
